FAERS Safety Report 26002971 (Version 1)
Quarter: 2025Q4

REPORT INFORMATION
  Report Type: Spontaneous
  Country: US (occurrence: US)
  Receive Date: 20251106
  Receipt Date: 20251106
  Transmission Date: 20260117
  Serious: No
  Sender: SANOFI AVENTIS
  Company Number: US-SA-2025SA319188

PATIENT

DRUGS (3)
  1. DUPIXENT [Suspect]
     Active Substance: DUPILUMAB
     Indication: Eczema
     Dosage: UNK, 1X
     Route: 065
     Dates: start: 20250922, end: 20250922
  2. DUPIXENT [Suspect]
     Active Substance: DUPILUMAB
     Dosage: 2 DF
     Route: 065
     Dates: start: 20251006, end: 2025
  3. NALTREXONE [Suspect]
     Active Substance: NALTREXONE
     Indication: Fibromyalgia
     Dosage: UNK
     Dates: start: 20250926

REACTIONS (4)
  - Dyspnoea [Unknown]
  - Dysphagia [Unknown]
  - Injection site urticaria [Unknown]
  - Incorrect dose administered [Unknown]

NARRATIVE: CASE EVENT DATE: 20251006
